FAERS Safety Report 5465836-7 (Version None)
Quarter: 2007Q3

REPORT INFORMATION
  Report Type: 
  Country: None (occurrence: None)
  Receive Date: 20070919
  Receipt Date: 20070919
  Transmission Date: 20080115
  Serious: Yes (Hospitalization)
  Sender: FDA-Public Use
  Company Number: None

PATIENT
  Age: 86 Year
  Sex: Female
  Weight: 54.8852 kg

DRUGS (9)
  1. CAMPRAL [Suspect]
     Indication: ALCOHOL USE
     Dosage: 333MG DAILY PO
     Route: 048
     Dates: start: 20070914, end: 20070917
  2. ASPIRIN [Concomitant]
  3. ARICEPT [Concomitant]
  4. LEXAPRO [Concomitant]
  5. NAMENDA [Concomitant]
  6. TOPROL-XL [Concomitant]
  7. ZOCOR [Concomitant]
  8. AMBIEN [Concomitant]
  9. ATIVAN [Concomitant]

REACTIONS (5)
  - ANGIOEDEMA [None]
  - LYMPHADENOPATHY [None]
  - MEDICATION ERROR [None]
  - SOMNOLENCE [None]
  - SWOLLEN TONGUE [None]
